FAERS Safety Report 13046094 (Version 1)
Quarter: 2016Q4

REPORT INFORMATION
  Report Type: Spontaneous
  Country: US (occurrence: US)
  Receive Date: 20161220
  Receipt Date: 20161220
  Transmission Date: 20170207
  Serious: No
  Sender: FDA-Public Use
  Company Number: US-COVIS PHARMA S.A.R.L.-2016COV00001

PATIENT
  Sex: Female
  Weight: 78.5 kg

DRUGS (10)
  1. SPIRONOLACTONE. [Concomitant]
     Active Substance: SPIRONOLACTONE
     Dosage: 25 MG, UNK
  2. ATORVASTATIN [Concomitant]
     Active Substance: ATORVASTATIN
     Dosage: 20 MG, UNK
  3. PROGESTERONE/TESTOSTERONE TRANSDERMAL GEL [Concomitant]
  4. BENADRYL [Concomitant]
     Active Substance: DIPHENHYDRAMINE HYDROCHLORIDE
  5. PROGESTERONE. [Concomitant]
     Active Substance: PROGESTERONE
     Dosage: 100 MG, UNK
  6. MULTIVITAMIN [Concomitant]
     Active Substance: VITAMINS
  7. NEXIUM [Concomitant]
     Active Substance: ESOMEPRAZOLE MAGNESIUM
     Dosage: 22.2 MG, UNK
  8. SOTALOL. [Suspect]
     Active Substance: SOTALOL
     Indication: ATRIAL TACHYCARDIA
     Dosage: 120 MG, 2X/DAY
     Route: 048
  9. COQ10 [Concomitant]
     Active Substance: UBIDECARENONE
  10. ALEVE [Concomitant]
     Active Substance: NAPROXEN SODIUM
     Dosage: UNK

REACTIONS (1)
  - Dizziness [Recovered/Resolved]
